FAERS Safety Report 10031437 (Version 2)
Quarter: 2014Q1

REPORT INFORMATION
  Report Type: Report from Study
  Country: ES (occurrence: ES)
  Receive Date: 20140324
  Receipt Date: 20140324
  Transmission Date: 20141002
  Serious: Yes (Hospitalization)
  Sender: FDA-Public Use
  Company Number: ES-BAYER-2013-136459

PATIENT
  Age: 74 Year
  Sex: Female
  Weight: 57 kg

DRUGS (11)
  1. RIOCIGUAT (GUANYLATE CYCLASE STIMULATOR) [Suspect]
     Indication: PULMONARY HYPERTENSION
     Dosage: 2.5 MG, TID
     Route: 048
     Dates: start: 20130927, end: 20131025
  2. RIOCIGUAT (GUANYLATE CYCLASE STIMULATOR) [Suspect]
     Indication: PULMONARY HYPERTENSION
     Dosage: 2.5 MG, TID
     Route: 048
     Dates: start: 20131025, end: 20131125
  3. FORMOTEROL W/BUDESONIDE [Concomitant]
     Indication: CHRONIC OBSTRUCTIVE PULMONARY DISEASE
     Dosage: 160/4.5 MCG TID
     Route: 055
     Dates: start: 20110209
  4. ATROVENT INHALER [Concomitant]
     Indication: CHRONIC OBSTRUCTIVE PULMONARY DISEASE
     Dosage: 20 ?G, 4INH./ 6H
     Route: 055
     Dates: start: 20110209
  5. NIFEDIPIN [Concomitant]
     Indication: HYPERTENSION
     Dosage: 20 MG, TID
     Route: 048
     Dates: start: 20110317
  6. FUROSEMID [Concomitant]
     Indication: HYPERTENSION
     Dosage: 40 MG, BID
     Route: 048
     Dates: start: 20111007
  7. DIGOXIN [Concomitant]
     Indication: ATRIAL FIBRILLATION
     Dosage: 0.25MG/48H
     Route: 048
     Dates: start: 1998
  8. ACENOCOUMAROL [Concomitant]
     Indication: CARDIAC VALVE DISEASE
     Dosage: VARIABLE
     Route: 048
     Dates: start: 1998
  9. OMEPRAZOLE [Concomitant]
     Indication: CARDIAC VALVE DISEASE
     Dosage: DAILY DOSE 20 MG
     Route: 048
     Dates: start: 199812
  10. SPIRONOLACTONE [Concomitant]
     Indication: FLUID RETENTION
     Dosage: 100 MG, QD
     Route: 048
     Dates: start: 20130830, end: 20131025
  11. BOI K [Concomitant]
     Dosage: 10 MEQ/DAY
     Route: 048
     Dates: start: 20131025

REACTIONS (1)
  - Left ventricular failure [Recovered/Resolved]
